FAERS Safety Report 6123383-3 (Version None)
Quarter: 2009Q1

REPORT INFORMATION
  Report Type: 
  Country: None (occurrence: None)
  Receive Date: 20090318
  Receipt Date: 20090310
  Transmission Date: 20090719
  Serious: Yes (Death)
  Sender: FDA-Public Use
  Company Number: CA-AMGEN-QUU337870

PATIENT
  Age: 91 Year
  Sex: Female
  Weight: 74 kg

DRUGS (4)
  1. ENBREL [Suspect]
     Indication: DRUG USE FOR UNKNOWN INDICATION
     Route: 058
  2. METHOTREXATE [Concomitant]
  3. PLAQUENIL [Concomitant]
     Route: 048
  4. PREDNISONE TAB [Concomitant]

REACTIONS (2)
  - DERMATITIS [None]
  - SKIN INFECTION [None]
